FAERS Safety Report 15457772 (Version 2)
Quarter: 2020Q3

REPORT INFORMATION
  Report Type: Report from Study
  Country: DE (occurrence: DE)
  Receive Date: 20181003
  Receipt Date: 20181010
  Transmission Date: 20201105
  Serious: Yes (Hospitalization)
  Sender: FDA-Public Use
  Company Number: DE-ROCHE-2190884

PATIENT
  Age: 50 Year
  Sex: Female
  Weight: 60.5 kg

DRUGS (9)
  1. OBINUTUZUMAB. [Suspect]
     Active Substance: OBINUTUZUMAB
     Indication: CHRONIC LYMPHOCYTIC LEUKAEMIA
     Dosage: MOST RECENT DOSE 1000 MG ON 05/SEP/2018 PRIOR TO SERIOUS ADVERSE EVENT (SAE).
     Route: 065
     Dates: start: 20180808
  2. ALLOPURINOL. [Concomitant]
     Active Substance: ALLOPURINOL
     Route: 048
     Dates: start: 20180807
  3. ACICLOVIR [Concomitant]
     Active Substance: ACYCLOVIR
     Route: 048
     Dates: start: 20180814
  4. AMOXICILLIN. [Concomitant]
     Active Substance: AMOXICILLIN
     Route: 048
     Dates: start: 20180815
  5. AMPHO?MORONAL [Concomitant]
     Active Substance: AMPHOTERICIN B
     Route: 048
     Dates: start: 20180816
  6. VENETOCLAX. [Suspect]
     Active Substance: VENETOCLAX
     Indication: CHRONIC LYMPHOCYTIC LEUKAEMIA
     Dosage: MOST RECENT DOSE 100 MG ON 25/SEP/2018
     Route: 048
     Dates: start: 20180830
  7. CLAVULANIC ACID [Concomitant]
     Active Substance: CLAVULANIC ACID
     Route: 048
     Dates: start: 20180815
  8. IBRUTINIB [Suspect]
     Active Substance: IBRUTINIB
     Indication: CHRONIC LYMPHOCYTIC LEUKAEMIA
     Dosage: MOST RECENT DOSE 420 MG ON 26/SEP/2018.
     Route: 065
     Dates: start: 20180808
  9. COTRIM FORTE [Concomitant]
     Active Substance: SULFAMETHOXAZOLE\TRIMETHOPRIM
     Route: 048
     Dates: start: 20180808

REACTIONS (2)
  - Abdominal pain upper [Recovered/Resolved with Sequelae]
  - Biliary colic [Recovered/Resolved with Sequelae]

NARRATIVE: CASE EVENT DATE: 20180922
